FAERS Safety Report 9390412 (Version 3)
Quarter: 2013Q3

REPORT INFORMATION
  Report Type: Spontaneous
  Country: JP (occurrence: JP)
  Receive Date: 20130709
  Receipt Date: 20130807
  Transmission Date: 20140515
  Serious: Yes (Hospitalization, Other)
  Sender: FDA-Public Use
  Company Number: PHHY2013JP071326

PATIENT
  Sex: Female
  Weight: 65 kg

DRUGS (2)
  1. DICLOFENAC [Suspect]
     Indication: SPINAL COLUMN STENOSIS
     Dosage: 75 MG, PER DAY
     Route: 048
  2. LOXOPROFEN [Suspect]
     Indication: SPINAL COLUMN STENOSIS
     Dosage: 180 MG
     Route: 048

REACTIONS (14)
  - Peritonitis [Unknown]
  - Pyrexia [Unknown]
  - Abdominal pain [Unknown]
  - Klebsiella infection [Unknown]
  - Bacteroides infection [Unknown]
  - Abdominal tenderness [Unknown]
  - Septic shock [Recovered/Resolved]
  - Gastrointestinal perforation [Unknown]
  - Nausea [Unknown]
  - Vomiting [Unknown]
  - Large intestine perforation [Recovered/Resolved]
  - Renal failure acute [Unknown]
  - Anuria [Unknown]
  - Renal impairment [Unknown]
